FAERS Safety Report 6546804-0 (Version None)
Quarter: 2010Q1

REPORT INFORMATION
  Report Type: 
  Country: None (occurrence: None)
  Receive Date: 20100122
  Receipt Date: 20100115
  Transmission Date: 20100710
  Serious: Yes (Hospitalization, Other)
  Sender: FDA-Public Use
  Company Number: US-ROXANE LABORATORIES, INC.-2010-RO-00039RO

PATIENT
  Age: 53 Year
  Sex: Female

DRUGS (5)
  1. TOPIRAMATE [Suspect]
     Indication: EPILEPSY
  2. LEVETIRACETAM [Suspect]
  3. PHENYTOIN [Suspect]
  4. VALPROATE SODIUM [Suspect]
     Indication: EPILEPSY
  5. LACTULOSE [Concomitant]

REACTIONS (3)
  - DRUG INEFFECTIVE [None]
  - HYPERAMMONAEMIC ENCEPHALOPATHY [None]
  - STATUS EPILEPTICUS [None]
